FAERS Safety Report 9039722 (Version 1)
Quarter: 2013Q1

REPORT INFORMATION
  Report Type: Spontaneous
  Country: US (occurrence: US)
  Receive Date: 20130130
  Receipt Date: 20130130
  Transmission Date: 20140127
  Serious: No
  Sender: FDA-Public Use
  Company Number: US-ABBOTT-12P-163-0917871-00

PATIENT
  Sex: 0

DRUGS (3)
  1. HUMIRA 40 MG/ 0.8 ML PRE-FILLED SYRINGE [Suspect]
     Indication: PRODUCT USED FOR UNKNOWN INDICATION
  2. MTX [Suspect]
     Indication: PRODUCT USED FOR UNKNOWN INDICATION
  3. PREDNISONE [Suspect]
     Indication: PRODUCT USED FOR UNKNOWN INDICATION
     Dates: start: 201201

REACTIONS (51)
  - Fatigue [Unknown]
  - Feeling abnormal [Unknown]
  - Fatigue [Recovered/Resolved]
  - Wound secretion [Unknown]
  - Skin fissures [Unknown]
  - Feeling abnormal [Recovered/Resolved]
  - Wound drainage [Unknown]
  - Erythema [Unknown]
  - Fatigue [Unknown]
  - Fatigue [Unknown]
  - Skin exfoliation [Unknown]
  - Stomatitis [Unknown]
  - Rhinorrhoea [Unknown]
  - Eye swelling [Unknown]
  - Eye discharge [Unknown]
  - Immunosuppression [Unknown]
  - Fatigue [Unknown]
  - Unevaluable event [Unknown]
  - Malaise [Unknown]
  - Immunosuppression [Unknown]
  - Erythema [Unknown]
  - Activities of daily living impaired [Unknown]
  - Immune system disorder [Unknown]
  - Skin disorder [Unknown]
  - Erythema [Unknown]
  - Skin plaque [Recovered/Resolved]
  - Skin exfoliation [Unknown]
  - Erythema [Unknown]
  - Local swelling [Unknown]
  - Arthralgia [Unknown]
  - Arthralgia [Unknown]
  - Psoriasis [Unknown]
  - Pain of skin [Unknown]
  - Pain in extremity [Unknown]
  - Pustular psoriasis [Unknown]
  - Psoriasis [Recovered/Resolved]
  - Psoriasis [Unknown]
  - Skin infection [Unknown]
  - Drug ineffective [Unknown]
  - Psoriasis [Unknown]
  - Eye infection [Unknown]
  - Psoriasis [Recovered/Resolved]
  - Pustular psoriasis [Unknown]
  - Pustular psoriasis [Recovered/Resolved]
  - Skin infection [Unknown]
  - Lung infection [Unknown]
  - Drug ineffective [Unknown]
  - Infection [Unknown]
  - Malaise [Unknown]
  - Unevaluable event [Unknown]
  - Insomnia [Recovered/Resolved]
